FAERS Safety Report 17423757 (Version 1)
Quarter: 2020Q1

REPORT INFORMATION
  Report Type: Spontaneous
  Country: US (occurrence: US)
  Receive Date: 20200131
  Receipt Date: 20200131
  Transmission Date: 20200409
  Serious: No
  Sender: FDA-Public Use
  Company Number: None

PATIENT
  Age: 66 Year
  Sex: Male

DRUGS (1)
  1. SEROSTIM [Suspect]
     Active Substance: SOMATROPIN
     Route: 058
     Dates: start: 20191201

REACTIONS (3)
  - Abdominal pain upper [None]
  - Blood pressure increased [None]
  - Renal impairment [None]

NARRATIVE: CASE EVENT DATE: 20200131
